FAERS Safety Report 23359029 (Version 2)
Quarter: 2024Q1

REPORT INFORMATION
  Report Type: Spontaneous
  Country: CN (occurrence: CN)
  Receive Date: 20240102
  Receipt Date: 20240106
  Transmission Date: 20240409
  Serious: Yes (Hospitalization, Other)
  Sender: FDA-Public Use
  Company Number: CN-009507513-2312CHN010628

PATIENT
  Age: 65 Year
  Sex: Female

DRUGS (2)
  1. CILASTATIN SODIUM\IMIPENEM [Suspect]
     Active Substance: CILASTATIN SODIUM\IMIPENEM
     Indication: Abdominal infection
     Dosage: 1 G, QD (ALSO REPORTED AS Q8H)
     Route: 041
     Dates: start: 20231211, end: 20231220
  2. LINEZOLID [Suspect]
     Active Substance: LINEZOLID
     Indication: Abdominal infection
     Dosage: 600 MG, QD (ALSO REPORTED AS Q12H)
     Route: 041
     Dates: start: 20231214, end: 20231218

REACTIONS (5)
  - Hypokalaemia [Recovering/Resolving]
  - Enterococcal infection [Unknown]
  - Drug resistance [Unknown]
  - Superinfection [Recovering/Resolving]
  - Clostridium difficile colitis [Recovering/Resolving]

NARRATIVE: CASE EVENT DATE: 20231214
